FAERS Safety Report 22346458 (Version 1)
Quarter: 2023Q2

REPORT INFORMATION
  Report Type: Spontaneous
  Country: US (occurrence: US)
  Receive Date: 20230519
  Receipt Date: 20230519
  Transmission Date: 20230722
  Serious: No
  Sender: FDA-Public Use
  Company Number: US-009507513-2305USA003181

PATIENT
  Age: 5 Month
  Sex: Male
  Weight: 7.8 kg

DRUGS (2)
  1. CUBICIN [Suspect]
     Active Substance: DAPTOMYCIN
     Indication: Haematological infection
     Dosage: 12 MG/KG/DOSE DAILY
  2. CEFTAROLINE [Concomitant]
     Active Substance: CEFTAROLINE
     Dosage: 15 MG/KG/DOSE EVERY 6 HOURS

REACTIONS (1)
  - Product use issue [Unknown]
